FAERS Safety Report 24747618 (Version 2)
Quarter: 2025Q3

REPORT INFORMATION
  Report Type: Spontaneous
  Country: US (occurrence: US)
  Receive Date: 20241218
  Receipt Date: 20250917
  Transmission Date: 20251020
  Serious: Yes (Other)
  Sender: COOPERSURGICAL
  Company Number: US-COOPERSURGICAL, INC.-2024CPS003918

PATIENT
  Age: 36 Year
  Sex: Female
  Weight: 48.98 kg

DRUGS (3)
  1. PARAGARD T 380A [Suspect]
     Active Substance: COPPER
     Indication: Contraception
     Route: 015
     Dates: start: 20130429
  2. NEXPLANON [Suspect]
     Active Substance: ETONOGESTREL
     Dates: start: 20220106
  3. METOPROLOL [Concomitant]
     Active Substance: METOPROLOL
     Dates: start: 20020601, end: 20221103

REACTIONS (12)
  - Device breakage [Not Recovered/Not Resolved]
  - Foreign body in reproductive tract [Not Recovered/Not Resolved]
  - Complication of device removal [Not Recovered/Not Resolved]
  - Procedural pain [Not Recovered/Not Resolved]
  - Post procedural haemorrhage [Unknown]
  - Dyspareunia [Unknown]
  - Pain [Unknown]
  - Device dislocation [Not Recovered/Not Resolved]
  - Muscle spasms [Unknown]
  - Dysmenorrhoea [Unknown]
  - Heavy menstrual bleeding [Unknown]
  - Pelvic pain [Unknown]

NARRATIVE: CASE EVENT DATE: 20211130
